FAERS Safety Report 19634396 (Version 1)
Quarter: 2021Q3

REPORT INFORMATION
  Report Type: Report from Study
  Country: US (occurrence: US)
  Receive Date: 20210730
  Receipt Date: 20210730
  Transmission Date: 20211014
  Serious: Yes (Other)
  Sender: FDA-Public Use
  Company Number: US-SUN PHARMACEUTICAL INDUSTRIES LTD-2021R1-306084

PATIENT
  Sex: Female

DRUGS (2)
  1. VINCRISTINE [Suspect]
     Active Substance: VINCRISTINE
     Indication: BRAIN STEM GLIOMA
     Dosage: TWO CYCLES
     Route: 065
  2. CARBOPLATIN. [Suspect]
     Active Substance: CARBOPLATIN
     Indication: BRAIN STEM GLIOMA
     Dosage: TWO CYCLES
     Route: 065

REACTIONS (1)
  - Neoplasm progression [Unknown]
